FAERS Safety Report 16993912 (Version 3)
Quarter: 2019Q4

REPORT INFORMATION
  Report Type: Spontaneous
  Country: US (occurrence: US)
  Receive Date: 20191105
  Receipt Date: 20191219
  Transmission Date: 20200122
  Serious: No
  Sender: FDA-Public Use
  Company Number: US-INCYTE CORPORATION-2019IN010771

PATIENT

DRUGS (3)
  1. JAKAFI [Suspect]
     Active Substance: RUXOLITINIB
     Indication: IMMUNE THROMBOCYTOPENIC PURPURA
     Dosage: 10 MILLIGRAM, BID
     Route: 048
     Dates: start: 20190202
  2. JAKAFI [Suspect]
     Active Substance: RUXOLITINIB
     Dosage: 10 MILLIGRAM, BID
     Route: 048
     Dates: start: 20190202
  3. JAKAFI [Suspect]
     Active Substance: RUXOLITINIB
     Dosage: 10 MILLIGRAM, QD
     Route: 065

REACTIONS (6)
  - Laboratory test abnormal [Recovering/Resolving]
  - Vomiting [Unknown]
  - Malaise [Unknown]
  - Product physical issue [Unknown]
  - White blood cell count increased [Unknown]
  - Off label use [Unknown]

NARRATIVE: CASE EVENT DATE: 20190202
